FAERS Safety Report 7982020-3 (Version None)
Quarter: 2011Q4

REPORT INFORMATION
  Report Type: 
  Country: None (occurrence: None)
  Receive Date: 20111213
  Receipt Date: 20111128
  Transmission Date: 20120403
  Serious: Yes (Hospitalization, Other)
  Sender: FDA-Public Use
  Company Number: 2011P1013403

PATIENT
  Age: 55 Year
  Sex: Female
  Weight: 77.1115 kg

DRUGS (3)
  1. LYRICA [Concomitant]
  2. FENTANYL [Suspect]
     Indication: PAIN
     Dosage: ;Q72H;TDER
     Route: 062
     Dates: start: 20100701, end: 20100830
  3. HYDROCODONE BITARTRATE [Suspect]
     Indication: PREOPERATIVE CARE
     Dates: start: 20110701

REACTIONS (8)
  - INSOMNIA [None]
  - GASTROOESOPHAGEAL REFLUX DISEASE [None]
  - ABDOMINAL PAIN UPPER [None]
  - POST PROCEDURAL COMPLICATION [None]
  - DYSPNOEA [None]
  - DYSPHONIA [None]
  - MYOCARDIAL INFARCTION [None]
  - RETCHING [None]
